FAERS Safety Report 10658500 (Version 1)
Quarter: 2014Q4

REPORT INFORMATION
  Report Type: Spontaneous
  Country: US (occurrence: None)
  Receive Date: 20141205
  Receipt Date: 20141205
  Transmission Date: 20150529
  Serious: Yes (Hospitalization)
  Sender: FDA-Public Use
  Company Number: 163-POMAL-14083716

PATIENT
  Age: 66 Year
  Sex: Female
  Weight: 88.63 kg

DRUGS (21)
  1. LEVOFLOXACIN. [Concomitant]
     Active Substance: LEVOFLOXACIN
  2. MUCINEX [Concomitant]
     Active Substance: GUAIFENESIN
  3. FLUCONAZOLE. [Concomitant]
     Active Substance: FLUCONAZOLE
  4. DEXAMETHASONE. [Concomitant]
     Active Substance: DEXAMETHASONE
  5. CALCIUM [Concomitant]
     Active Substance: CALCIUM
  6. LIDOCAINE. [Concomitant]
     Active Substance: LIDOCAINE
  7. NITROFURANTOIN. [Concomitant]
     Active Substance: NITROFURANTOIN
  8. SIMVASTATIN. [Concomitant]
     Active Substance: SIMVASTATIN
  9. POMALYST [Suspect]
     Active Substance: POMALIDOMIDE
     Indication: PLASMA CELL MYELOMA
     Dosage: 4 MG, 21 IN 21 D, PO
     Route: 048
     Dates: start: 20140226, end: 2014
  10. ALLEGRA [Concomitant]
     Active Substance: FEXOFENADINE HYDROCHLORIDE
  11. SENNA [Concomitant]
     Active Substance: SENNA LEAF\SENNOSIDES\SENNOSIDES A AND B
  12. LYRICA [Concomitant]
     Active Substance: PREGABALIN
  13. FUROSEMIDE. [Concomitant]
     Active Substance: FUROSEMIDE
  14. GUAIFENESIN. [Concomitant]
     Active Substance: GUAIFENESIN
  15. MULTIVITAMINS [Concomitant]
     Active Substance: VITAMINS
  16. TOLTERODINE [Concomitant]
     Active Substance: TOLTERODINE
  17. POTASSIUM [Concomitant]
     Active Substance: POTASSIUM
  18. DETROL [Concomitant]
     Active Substance: TOLTERODINE TARTRATE
  19. HCTZ [Concomitant]
     Active Substance: HYDROCHLOROTHIAZIDE
  20. IMIPRAMINE [Concomitant]
     Active Substance: IMIPRAMINE
  21. VITAMIN D [Concomitant]
     Active Substance: CHOLECALCIFEROL

REACTIONS (1)
  - Pneumonia [None]

NARRATIVE: CASE EVENT DATE: 20140807
